FAERS Safety Report 5053799-8 (Version None)
Quarter: 2006Q3

REPORT INFORMATION
  Report Type: 
  Country: None (occurrence: None)
  Receive Date: 20060712
  Receipt Date: 20060628
  Transmission Date: 20061208
  Serious: Yes (Other)
  Sender: FDA-Public Use
  Company Number: 2006073167

PATIENT
  Age: 60 Year
  Sex: Female

DRUGS (4)
  1. EPIRUBICIN [Suspect]
     Indication: BREAST CANCER
     Dosage: 60 MG/M*2, INTRAVENOUS
     Route: 042
     Dates: start: 20060118, end: 20060308
  2. FLUOROURACIL [Suspect]
     Indication: BREAST CANCER
     Dosage: 500 MG/M*2, INTRAVENOUS
     Route: 042
     Dates: start: 20060118, end: 20060308
  3. CYCLOPHOSPHAMIDE [Suspect]
     Indication: BREAST CANCER
     Dosage: 500 MG/M*2, INTRAVENOUS
     Route: 042
     Dates: start: 20060118, end: 20060308
  4. DRUG (DRUG) [Concomitant]

REACTIONS (1)
  - INTERSTITIAL LUNG DISEASE [None]
